FAERS Safety Report 6368545-5 (Version None)
Quarter: 2009Q3

REPORT INFORMATION
  Report Type: 
  Country: None (occurrence: None)
  Receive Date: 20090922
  Receipt Date: 20090914
  Transmission Date: 20100115
  Serious: Yes (Other)
  Sender: FDA-Public Use
  Company Number: GB-ROCHE-656346

PATIENT

DRUGS (2)
  1. MYCOPHENOLATE MOFETIL [Suspect]
     Dosage: DOSE: 1283 MG/DAY (+ AND - 461 MG/DAY).
     Route: 065
  2. MYCOPHENOLATE SODIUM [Suspect]
     Dosage: DRUG: ENTERIC-COATED MYCOPHENOLATE SODIUM
     Route: 065

REACTIONS (5)
  - DIARRHOEA [None]
  - NAUSEA [None]
  - RENAL FAILURE ACUTE [None]
  - TRANSPLANT REJECTION [None]
  - VOMITING [None]
